FAERS Safety Report 21950649 (Version 1)
Quarter: 2023Q1

REPORT INFORMATION
  Report Type: Spontaneous
  Country: DE (occurrence: DE)
  Receive Date: 20230203
  Receipt Date: 20230203
  Transmission Date: 20230417
  Serious: Yes (Other)
  Sender: FDA-Public Use
  Company Number: DE-EMBRYOTOX-202107754

PATIENT
  Age: 1 Day
  Sex: Female

DRUGS (5)
  1. METOPROLOL [Suspect]
     Active Substance: METOPROLOL
     Indication: Hypertension
     Dosage: 50 MILLIGRAM DAILY; , 0. - 40.4. GESTATIONAL WEEK
     Route: 065
     Dates: start: 20201222, end: 20211002
  2. Serroflo Dosieraerosol [Concomitant]
     Indication: Asthma
     Dosage: 50 [UG/D ] / 500 [UG/D ] 2 SEPARATED DOSES, 0. - 40.4. GESTATIONAL WEEK
     Route: 065
     Dates: start: 20201222, end: 20211002
  3. COMIRNATY [Concomitant]
     Active Substance: TOZINAMERAN
     Indication: COVID-19 immunisation
     Dosage: 28.5. - 28.5. GESTATIONAL WEEK
     Dates: start: 20210711, end: 20210711
  4. COMIRNATY [Concomitant]
     Active Substance: TOZINAMERAN
     Dosage: 28.5. - 28.5. GESTATIONAL WEEK
     Dates: start: 20210808, end: 20210808
  5. CYTOTEC [Concomitant]
     Active Substance: MISOPROSTOL
     Indication: Labour induction
     Dosage: TRIMESTER: INTRAPARTUM
     Route: 065

REACTIONS (2)
  - Small for dates baby [Unknown]
  - Foetal exposure during pregnancy [Unknown]

NARRATIVE: CASE EVENT DATE: 20201222
